FAERS Safety Report 8337123-0 (Version None)
Quarter: 2012Q2

REPORT INFORMATION
  Report Type: 
  Country: None (occurrence: None)
  Receive Date: 20120504
  Receipt Date: 20120430
  Transmission Date: 20120825
  Serious: Yes (Hospitalization, Disabling, Other)
  Sender: FDA-Public Use
  Company Number: PHHY2011DE56097

PATIENT
  Sex: Male
  Weight: 130 kg

DRUGS (19)
  1. HUMALOG [Concomitant]
     Indication: DIABETES MELLITUS
     Dosage: 250 IU, QD
     Route: 058
     Dates: start: 19990110
  2. DIOVAN HCT [Suspect]
     Indication: HYPERTENSION
     Dosage: 1 DF, UNK
     Route: 048
  3. DIOVAN [Suspect]
     Indication: HYPERTENSION
     Dosage: 160 MG, DAILY
     Route: 048
     Dates: start: 20070420, end: 20090319
  4. ADENURIC [Concomitant]
     Indication: GOUT
     Dosage: 120 MG, QD
     Route: 048
     Dates: start: 20100428
  5. RASILEZ [Suspect]
     Indication: HYPERTENSION
     Dosage: 300 MG DAILY
     Route: 048
     Dates: start: 20071114, end: 20120215
  6. VALSARTAN [Suspect]
     Indication: HYPERTENSION
     Dosage: 320 MG, QD
     Route: 048
     Dates: start: 20070420
  7. METFORMIN HCL [Concomitant]
     Indication: DIABETES MELLITUS
     Dosage: 1700 MG, DAILY
     Route: 048
     Dates: start: 20070101
  8. SIMVASTATIN [Concomitant]
     Dosage: 20 MG, DAILY
     Route: 048
     Dates: start: 20080915
  9. INSULIN HUMAN [Concomitant]
     Indication: DIABETES MELLITUS
     Dosage: 70 IU, DAILY
     Route: 058
     Dates: start: 19990111
  10. SIMVASTATIN [Concomitant]
     Indication: HYPERLIPIDAEMIA
     Dosage: 40 MG, DAILY
     Route: 048
     Dates: start: 20081106
  11. PANTOPRAZOLE [Concomitant]
     Indication: PROPHYLAXIS
     Dosage: 20 MG, QD
     Route: 048
     Dates: start: 20080915
  12. TORSEMIDE [Suspect]
     Indication: HYPERTENSION
     Dosage: 20 MG, DAILY
     Route: 048
     Dates: start: 20070414
  13. DOXAZOSIN MESYLATE [Suspect]
     Indication: HYPERTENSION
     Dosage: 8 MG, DAILY
     Route: 048
     Dates: start: 20070427
  14. LERCANIDIPINE [Suspect]
     Indication: HYPERTENSION
     Dosage: 40 MG/D
     Route: 048
     Dates: start: 20070420
  15. DIURETICS [Concomitant]
     Dosage: UNK UKN, UNK
     Dates: start: 20110110
  16. ASPIRIN [Concomitant]
     Indication: PERIPHERAL ARTERIAL OCCLUSIVE DISEASE
     Dosage: 100 MG, DAILY
     Route: 048
     Dates: start: 20000101
  17. DIOVAN [Suspect]
     Dosage: 320 MG,DAILY
     Route: 048
     Dates: start: 20090319, end: 20110110
  18. NEBIVOLOL HCL [Concomitant]
     Indication: HYPERTENSION
     Dosage: 5 MG, DAILY
     Route: 048
     Dates: start: 20050101, end: 20120105
  19. OTHER ANTIHYPERTENSIVES [Concomitant]
     Dosage: UNK UKN, UNK

REACTIONS (13)
  - REFRACTORY ANAEMIA [None]
  - HYPERTENSIVE CRISIS [None]
  - C-REACTIVE PROTEIN INCREASED [None]
  - BLOOD PRESSURE DIASTOLIC DECREASED [None]
  - DIABETIC FOOT [None]
  - IMPAIRED WORK ABILITY [None]
  - MYELODYSPLASTIC SYNDROME [None]
  - LEFT VENTRICULAR HYPERTROPHY [None]
  - ELECTROCARDIOGRAM QRS COMPLEX PROLONGED [None]
  - DYSPNOEA [None]
  - CREATININE URINE INCREASED [None]
  - GOUT [None]
  - ANGINA PECTORIS [None]
